FAERS Safety Report 12501466 (Version 1)
Quarter: 2016Q2

REPORT INFORMATION
  Report Type: Spontaneous
  Country: US (occurrence: US)
  Receive Date: 20160627
  Receipt Date: 20160627
  Transmission Date: 20160815
  Serious: No
  Sender: FDA-Public Use
  Company Number: US-BAYER-2016-123939

PATIENT
  Age: 70 Year
  Sex: Female
  Weight: 114.74 kg

DRUGS (2)
  1. MIRALAX [Suspect]
     Active Substance: POLYETHYLENE GLYCOL 3350
     Dosage: 1 DOSE, QD
     Route: 048
     Dates: start: 2016
  2. MIRALAX [Suspect]
     Active Substance: POLYETHYLENE GLYCOL 3350
     Dosage: ONE AND ONE HALF TEASPOONS DAILY, QD
     Dates: end: 2016

REACTIONS (5)
  - Abdominal distension [Recovered/Resolved]
  - Abdominal pain upper [Recovered/Resolved]
  - Product use issue [None]
  - Product use issue [None]
  - Muscle spasms [Recovered/Resolved]

NARRATIVE: CASE EVENT DATE: 2016
